FAERS Safety Report 6642244-4 (Version None)
Quarter: 2010Q1

REPORT INFORMATION
  Report Type: 
  Country: None (occurrence: None)
  Receive Date: 20100316
  Receipt Date: 20100308
  Transmission Date: 20100710
  Serious: Yes (Other)
  Sender: FDA-Public Use
  Company Number: 20100107

PATIENT
  Age: 52 Year
  Sex: Male

DRUGS (2)
  1. FUROSEMIDE [Suspect]
     Indication: OEDEMA PERIPHERAL
     Dosage: 20 MG/DAY, THEN 60MG/DAY INJECTION NOS
  2. LISINOPRIL [Suspect]
     Dosage: 10MG/DAY

REACTIONS (2)
  - DIALYSIS [None]
  - RENAL FAILURE ACUTE [None]
